FAERS Safety Report 8432308-7 (Version None)
Quarter: 2012Q2

REPORT INFORMATION
  Report Type: 
  Country: None (occurrence: None)
  Receive Date: 20120613
  Receipt Date: 20120608
  Transmission Date: 20120825
  Serious: Yes (Hospitalization, Other)
  Sender: FDA-Public Use
  Company Number: PHHY2012BR050030

PATIENT
  Sex: Female

DRUGS (3)
  1. FORMOTEROL FUMARATE [Suspect]
     Indication: EMPHYSEMA
     Dosage: 2 INHALATIONS OF EACH TREATMENT DAILY, IN THE MORNING AND AT NIGHT
  2. FOSAMAX [Concomitant]
     Dosage: 70 MG, UNK (1 TABLET/WEEK)
  3. COMBIVENT [Concomitant]
     Indication: DYSPNOEA
     Dates: end: 20120604

REACTIONS (2)
  - PNEUMONIA [None]
  - DYSPNOEA [None]
